FAERS Safety Report 4907107-0 (Version None)
Quarter: 2006Q1

REPORT INFORMATION
  Report Type: 
  Country: None (occurrence: None)
  Receive Date: 20060206
  Receipt Date: 20060124
  Transmission Date: 20060701
  Serious: Yes (Hospitalization)
  Sender: FDA-Public Use
  Company Number: 2005169908

PATIENT
  Age: 80 Year
  Sex: Female

DRUGS (9)
  1. ZITHROMAX [Suspect]
     Indication: BRONCHITIS ACUTE
     Dosage: 500 MG (1 IN 1 D), ORAL
     Route: 048
     Dates: start: 20051208, end: 20051209
  2. PRAVASTATIN [Concomitant]
  3. BLOPRESS (CANDESARTAN CILEXETIL) [Concomitant]
  4. HERBAL PREPARATION (HERBAL PREPARATION) [Concomitant]
  5. ROCEPHIN [Concomitant]
  6. ALOTEC (ORCIPRENALINE SULFATE) [Concomitant]
  7. TELEMINSOFT (BISACODYL) [Concomitant]
  8. LOXONIN (LOXOPROFEN SODIUM) [Concomitant]
  9. MAGNESIUM OXIDE (MAGNESIUM OXIDE) [Concomitant]

REACTIONS (7)
  - ABDOMINAL PAIN [None]
  - ATRIOVENTRICULAR BLOCK SECOND DEGREE [None]
  - BRADYCARDIA [None]
  - CONSTIPATION [None]
  - ELECTROCARDIOGRAM QRS COMPLEX PROLONGED [None]
  - ELECTROCARDIOGRAM QT PROLONGED [None]
  - PYREXIA [None]
